APPROVED DRUG PRODUCT: CALCIUM ACETATE
Active Ingredient: CALCIUM ACETATE
Strength: 667MG
Dosage Form/Route: CAPSULE;ORAL
Application: A211038 | Product #001 | TE Code: AB
Applicant: SUVEN PHARMACEUTICALS LTD
Approved: Feb 21, 2020 | RLD: No | RS: No | Type: RX